FAERS Safety Report 20649960 (Version 1)
Quarter: 2022Q1

REPORT INFORMATION
  Report Type: Spontaneous
  Country: US (occurrence: US)
  Receive Date: 20220329
  Receipt Date: 20220329
  Transmission Date: 20220424
  Serious: No
  Sender: FDA-Public Use
  Company Number: US-GSKCCFUS-Case-01332668_AE-77470

PATIENT
  Age: 50 Year
  Sex: Female

DRUGS (1)
  1. BENLYSTA [Suspect]
     Active Substance: BELIMUMAB
     Indication: Systemic lupus erythematosus
     Dosage: UNK UNK, VA
     Route: 042
     Dates: start: 20211025

REACTIONS (1)
  - Alopecia [Not Recovered/Not Resolved]

NARRATIVE: CASE EVENT DATE: 20211225
